FAERS Safety Report 19556700 (Version 2)
Quarter: 2021Q3

REPORT INFORMATION
  Report Type: Spontaneous
  Country: US (occurrence: US)
  Receive Date: 20210714
  Receipt Date: 20210716
  Transmission Date: 20211014
  Serious: Yes (Hospitalization)
  Sender: FDA-Public Use
  Company Number: US-PFIZER INC-2021838697

PATIENT
  Age: 66 Year
  Sex: Male
  Weight: 325 kg

DRUGS (2)
  1. SUTENT [Suspect]
     Active Substance: SUNITINIB MALATE
     Dosage: 50 MG, DAILY
     Route: 048
     Dates: start: 20210521
  2. SUTENT [Suspect]
     Active Substance: SUNITINIB MALATE
     Indication: GASTROINTESTINAL STROMAL TUMOUR
     Dosage: 50 MG, DAILY
     Route: 048
     Dates: start: 20210521

REACTIONS (5)
  - Diarrhoea [Unknown]
  - Asthenia [Unknown]
  - Decreased appetite [Unknown]
  - Abdominal discomfort [Unknown]
  - Pancreatitis [Unknown]
